FAERS Safety Report 9560149 (Version 1)
Quarter: 2013Q3

REPORT INFORMATION
  Report Type: Spontaneous
  Country: US (occurrence: US)
  Receive Date: 20130927
  Receipt Date: 20130927
  Transmission Date: 20140515
  Serious: No
  Sender: FDA-Public Use
  Company Number: US-BIOGENIDEC-2013BI048039

PATIENT
  Age: 65 Year
  Sex: Male

DRUGS (5)
  1. TECFIDERA [Suspect]
     Indication: MULTIPLE SCLEROSIS
     Route: 048
  2. PROVIGIL [Concomitant]
  3. SAW PALMETTO [Concomitant]
  4. VITAMIN D3 [Concomitant]
  5. VITAMINS/ MINERALS [Concomitant]

REACTIONS (1)
  - Abdominal discomfort [Unknown]
